FAERS Safety Report 20101782 (Version 1)
Quarter: 2021Q4

REPORT INFORMATION
  Report Type: Spontaneous
  Country: US (occurrence: None)
  Receive Date: 20211122
  Receipt Date: 20211122
  Transmission Date: 20220303
  Serious: Yes (Life-Threatening, Hospitalization, Other)
  Sender: FDA-Public Use
  Company Number: None

PATIENT
  Age: 85 Year
  Sex: Male
  Weight: 105.75 kg

DRUGS (1)
  1. GAMMAGARD [Suspect]
     Active Substance: HUMAN IMMUNOGLOBULIN G
     Indication: Polyneuropathy
     Dosage: OTHER FREQUENCY : OVER5 DAYS Q MONTH;?
     Route: 042
     Dates: start: 20211004, end: 20211031

REACTIONS (2)
  - Fatigue [None]
  - Pulmonary embolism [None]

NARRATIVE: CASE EVENT DATE: 20211031
